FAERS Safety Report 8269660-1 (Version None)
Quarter: 2012Q2

REPORT INFORMATION
  Report Type: 
  Country: None (occurrence: None)
  Receive Date: 20120410
  Receipt Date: 20120328
  Transmission Date: 20120825
  Serious: Yes (Other)
  Sender: FDA-Public Use
  Company Number: AR-AMGEN-ARGSP2012011369

PATIENT
  Age: 67 Year
  Sex: Female

DRUGS (2)
  1. T4 [Concomitant]
     Dosage: UNK
  2. ENBREL [Suspect]
     Indication: RHEUMATOID ARTHRITIS
     Dosage: 25 MG, 2X/WEEK
     Route: 058
     Dates: start: 20080101, end: 20120101

REACTIONS (2)
  - WOUND INFECTION [None]
  - LIMB INJURY [None]
